FAERS Safety Report 10103318 (Version 1)
Quarter: 2014Q2

REPORT INFORMATION
  Report Type: Report from Study
  Country: CZ (occurrence: CZ)
  Receive Date: 20140424
  Receipt Date: 20140424
  Transmission Date: 20141212
  Serious: Yes (Hospitalization)
  Sender: FDA-Public Use
  Company Number: CZ-GLAXOSMITHKLINE-Z0014019B

PATIENT
  Age: 57 Year
  Sex: Female
  Weight: 69 kg

DRUGS (4)
  1. ELTROMBOPAG [Suspect]
     Indication: IMMUNE THROMBOCYTOPENIC PURPURA
     Route: 048
     Dates: start: 20120104, end: 20140107
  2. BATRAFEN [Concomitant]
     Indication: FUNGAL INFECTION
     Route: 061
     Dates: start: 20140211
  3. BELODERM [Concomitant]
     Indication: FUNGAL INFECTION
     Route: 061
     Dates: start: 20140211
  4. SALICYLIC ACID + UREA [Concomitant]
     Indication: FUNGAL INFECTION
     Route: 061
     Dates: start: 20140211

REACTIONS (1)
  - Peripheral swelling [Recovered/Resolved]
